FAERS Safety Report 24603308 (Version 1)
Quarter: 2024Q4

REPORT INFORMATION
  Report Type: Spontaneous
  Country: CN (occurrence: CN)
  Receive Date: 20241111
  Receipt Date: 20241111
  Transmission Date: 20250114
  Serious: Yes (Life-Threatening)
  Sender: MERCK
  Company Number: CN-009507513-2411CHN001977

PATIENT
  Age: 29 Year
  Sex: Male
  Weight: 63 kg

DRUGS (2)
  1. KEYTRUDA [Suspect]
     Active Substance: PEMBROLIZUMAB
     Indication: Nasopharyngeal cancer
     Dosage: 200 MILLIGRAM, Q3W
     Route: 041
     Dates: start: 20240618, end: 20240618
  2. SODIUM CHLORIDE [Concomitant]
     Active Substance: SODIUM CHLORIDE
     Dosage: 100 MILLILITER
     Dates: start: 20240618, end: 20240618

REACTIONS (3)
  - Hypersensitivity [Recovering/Resolving]
  - Blood pressure abnormal [Unknown]
  - Chills [Unknown]

NARRATIVE: CASE EVENT DATE: 20240618
